FAERS Safety Report 9396161 (Version 1)
Quarter: 2013Q3

REPORT INFORMATION
  Report Type: Spontaneous
  Country: KR (occurrence: KR)
  Receive Date: 20130711
  Receipt Date: 20130711
  Transmission Date: 20140515
  Serious: Yes (Death)
  Sender: FDA-Public Use
  Company Number: KR-ROXANE LABORATORIES, INC.-2013-RO-01125RO

PATIENT
  Age: 56 Year
  Sex: Female

DRUGS (4)
  1. DEXAMETHASONE [Suspect]
     Indication: ANGIOIMMUNOBLASTIC T-CELL LYMPHOMA
  2. ALEMTUZUMAB [Suspect]
     Indication: ANGIOIMMUNOBLASTIC T-CELL LYMPHOMA
  3. CYTARABINE [Suspect]
     Indication: ANGIOIMMUNOBLASTIC T-CELL LYMPHOMA
  4. CISPLATIN [Suspect]
     Indication: ANGIOIMMUNOBLASTIC T-CELL LYMPHOMA

REACTIONS (1)
  - Candida infection [Fatal]
